FAERS Safety Report 14170554 (Version 1)
Quarter: 2017Q4

REPORT INFORMATION
  Report Type: Spontaneous
  Country: US (occurrence: US)
  Receive Date: 20171108
  Receipt Date: 20171108
  Transmission Date: 20180321
  Serious: Yes (Hospitalization, Other)
  Sender: FDA-Public Use
  Company Number: US-BAYER-2017-210782

PATIENT
  Sex: Male

DRUGS (1)
  1. DR. SCHOLLS CALLUS REMOVERS [Suspect]
     Active Substance: SALICYLIC ACID
     Dosage: UNK

REACTIONS (5)
  - Administration site discolouration [Unknown]
  - Pain in extremity [Unknown]
  - Decubitus ulcer [Unknown]
  - Leg amputation [Unknown]
  - Decubitus ulcer [Unknown]

NARRATIVE: CASE EVENT DATE: 201504
